FAERS Safety Report 25212294 (Version 1)
Quarter: 2025Q2

REPORT INFORMATION
  Report Type: Other
  Country: IN (occurrence: IN)
  Receive Date: 20250418
  Receipt Date: 20250418
  Transmission Date: 20250716
  Serious: Yes (Death, Hospitalization)
  Sender: ESJAY PHARMA
  Company Number: IN-ESJAY PHARMA-000538

PATIENT
  Age: 67 Year
  Sex: Male

DRUGS (3)
  1. CLARITHROMYCIN [Suspect]
     Active Substance: CLARITHROMYCIN
     Indication: Atypical mycobacterial infection
  2. IMIPENEM [Concomitant]
     Active Substance: IMIPENEM
     Indication: Atypical mycobacterial infection
     Route: 042
  3. LEVOFLOXACIN [Concomitant]
     Active Substance: LEVOFLOXACIN
     Indication: Atypical mycobacterial infection

REACTIONS (1)
  - Drug ineffective [Fatal]
